FAERS Safety Report 8958560 (Version 2)
Quarter: 2013Q2

REPORT INFORMATION
  Report Type: Spontaneous
  Country: GB (occurrence: GB)
  Receive Date: 20121203
  Receipt Date: 20130520
  Transmission Date: 20140414
  Serious: Yes (Hospitalization)
  Sender: FDA-Public Use
  Company Number: GB-BANPHARM-20120380

PATIENT
  Age: 78 Year
  Sex: Female

DRUGS (2)
  1. IBUPROFEN UNKNOWN PRODUCT [Suspect]
     Indication: ANALGESIC THERAPY
     Dosage: UNK,
     Route: 048
     Dates: start: 20041003, end: 20041003
  2. LOSARTAN [Concomitant]
     Indication: HYPERTENSION
     Dosage: 1 DAILY
     Route: 048

REACTIONS (2)
  - Gastrointestinal haemorrhage [Recovering/Resolving]
  - Gastritis [Recovering/Resolving]
